FAERS Safety Report 15552638 (Version 1)
Quarter: 2018Q4

REPORT INFORMATION
  Report Type: Spontaneous
  Country: US (occurrence: US)
  Receive Date: 20181025
  Receipt Date: 20181025
  Transmission Date: 20190205
  Serious: Yes (Other)
  Sender: FDA-Public Use
  Company Number: US-IMPAX LABORATORIES, INC-2018-IPXL-03428

PATIENT
  Age: 61 Year
  Sex: Female

DRUGS (3)
  1. METFORMIN HYDROCHLORIDE ER [Suspect]
     Active Substance: METFORMIN HYDROCHLORIDE
     Indication: PRODUCT USE IN UNAPPROVED INDICATION
  2. EXENATIDE. [Suspect]
     Active Substance: EXENATIDE
     Indication: LATENT AUTOIMMUNE DIABETES IN ADULTS
     Dosage: UNK
     Route: 065
  3. METFORMIN HYDROCHLORIDE ER [Suspect]
     Active Substance: METFORMIN HYDROCHLORIDE
     Indication: LATENT AUTOIMMUNE DIABETES IN ADULTS
     Dosage: UNK
     Route: 065

REACTIONS (2)
  - Product use in unapproved indication [Unknown]
  - Diabetic ketoacidosis [Recovering/Resolving]
